FAERS Safety Report 9677781 (Version 5)
Quarter: 2014Q2

REPORT INFORMATION
  Report Type: Spontaneous
  Country: DK (occurrence: DK)
  Receive Date: 20131108
  Receipt Date: 20140604
  Transmission Date: 20141212
  Serious: Yes (Death, Other)
  Sender: FDA-Public Use
  Company Number: DK-NOVOPROD-391426

PATIENT
  Age: 73 Year
  Sex: Male
  Weight: 112 kg

DRUGS (11)
  1. NOVOMIX 30 FLEXPEN [Suspect]
     Indication: DIABETES MELLITUS
     Dosage: DOSIS: 28 I.E. X 3, STYRKE: 100 E/ML
     Route: 058
     Dates: start: 20081217
  2. VICTOZA [Suspect]
     Indication: PRODUCT USED FOR UNKNOWN INDICATION
     Dosage: 1.8 U, QD
     Route: 058
  3. METFORMIN ACTAVIS [Suspect]
     Indication: DIABETES MELLITUS
     Dosage: 500 MG, BID
     Route: 048
     Dates: start: 20080619
  4. AMLODIPIN ACTAVIS                  /00972402/ [Concomitant]
     Indication: HYPERTENSION
     Dosage: 5 MG, QD
     Route: 048
     Dates: start: 20070905
  5. CENTYL MED KALIUMKLORID [Concomitant]
     Indication: HYPERTENSION
     Dosage: STYRKE: 2,5+573 MG
     Route: 048
     Dates: start: 20090813
  6. CENTYL MED KALIUMKLORID [Concomitant]
     Indication: HYPERTENSION
  7. FORXIGA [Concomitant]
     Indication: DIABETES MELLITUS
     Dosage: STYRKE: 10 MG
     Route: 048
     Dates: start: 20131008
  8. HJERTEMAGNYL                       /00228701/ [Concomitant]
     Indication: ARTERIOSCLEROSIS
     Dosage: 75 MG, QD
     Route: 048
     Dates: start: 20070627
  9. MASULIN [Concomitant]
     Dosage: STYRKE: 0,4 MG
     Route: 048
     Dates: start: 20131019
  10. RAMIPRIL HEXAL [Concomitant]
     Indication: HYPERTENSION
     Dosage: 10 MG, QD
     Route: 048
     Dates: start: 20110210
  11. SIMVASTATIN ACTAVIS [Concomitant]
     Indication: HYPERCHOLESTEROLAEMIA
     Dosage: 40 MG, QD
     Route: 048
     Dates: start: 20040304

REACTIONS (2)
  - Death [Fatal]
  - Product quality issue [Unknown]
